FAERS Safety Report 13818695 (Version 2)
Quarter: 2018Q1

REPORT INFORMATION
  Report Type: Report from Study
  Country: US (occurrence: US)
  Receive Date: 20170731
  Receipt Date: 20180201
  Transmission Date: 20180508
  Serious: No
  Sender: FDA-Public Use
  Company Number: US-EXELIXIS-CABO-16007710

PATIENT
  Sex: Male

DRUGS (2)
  1. CABOMETYX [Suspect]
     Active Substance: CABOZANTINIB S-MALATE
     Indication: RENAL CANCER
     Dosage: 60 MG, BI-WEEKLY
     Route: 048
     Dates: start: 201606
  2. ENERGY GREENS [Concomitant]

REACTIONS (6)
  - Secretion discharge [Not Recovered/Not Resolved]
  - Lung disorder [Recovered/Resolved]
  - Blister [Recovering/Resolving]
  - Pruritus [Not Recovered/Not Resolved]
  - Dysphonia [Unknown]
  - Dyspnoea [Recovered/Resolved]
